FAERS Safety Report 16703900 (Version 1)
Quarter: 2019Q3

REPORT INFORMATION
  Report Type: Spontaneous
  Country: FR (occurrence: FR)
  Receive Date: 20190814
  Receipt Date: 20190814
  Transmission Date: 20191004
  Serious: Yes (Hospitalization)
  Sender: FDA-Public Use
  Company Number: FR-TEVA-2019-FR-1091175

PATIENT
  Age: 83 Year
  Sex: Female
  Weight: 90 kg

DRUGS (20)
  1. DIFFU K, GELULE [Concomitant]
     Active Substance: POTASSIUM CHLORIDE
     Route: 048
  2. TRANSIPEG 5.9 G, POUDRE POUR SOLUTION BUVABLE EN SACHET [Concomitant]
     Dosage: IF NEEDED
     Route: 048
  3. FLUOXETINE (CHLORHYDRATE DE) [Suspect]
     Active Substance: FLUOXETINE HYDROCHLORIDE
     Indication: PRODUCT USED FOR UNKNOWN INDICATION
     Route: 048
     Dates: start: 20190506, end: 20190513
  4. CALCIPARINE SOUS CUTANEE 12 500 UI/0.5 ML, SOLUTION INJECTABLE [Concomitant]
     Route: 058
     Dates: start: 20190425, end: 20190520
  5. IMOVANE 3.75 MG, COMPRIME PELLICULE [Concomitant]
     Route: 048
  6. PANTOPRAZOLE ALMUS 20 MG, COMPRIME GASTRO-RESISTANT [Concomitant]
     Route: 048
  7. VITAMIN K [Concomitant]
     Active Substance: PHYTONADIONE
     Route: 048
     Dates: start: 20190523, end: 20190606
  8. COUMADINE 2 MG, COMPRIME SECABLE [Concomitant]
     Active Substance: WARFARIN SODIUM
     Route: 048
  9. PARACETAMOL [Concomitant]
     Active Substance: ACETAMINOPHEN
     Dosage: IF NEEDED
     Route: 048
  10. CEFTRIAXONE BASE [Concomitant]
     Active Substance: CEFTRIAXONE
     Route: 042
     Dates: start: 20190411, end: 20190510
  11. TELEBRIX GASTRO 300 MG IODE/ML, SOLUTION BUVABLE ET RECTALE [Concomitant]
     Route: 048
     Dates: start: 20190511, end: 20190511
  12. CORTANCYL [Concomitant]
     Active Substance: PREDNISONE
     Route: 048
     Dates: start: 201903
  13. AXEPIM 1 G, POUDRE POUR USAGE PARENTERAL [Concomitant]
     Route: 042
     Dates: start: 20180527, end: 20190529
  14. LEVOTHYROX 25 MICROGRAMMES, COMPRIME SECABLE [Concomitant]
     Active Substance: LEVOTHYROXINE
     Route: 048
  15. IZINOVA, SOLUTION A DILUER POUR SOLUTION BUVABLE [Concomitant]
     Route: 048
     Dates: start: 20190603, end: 20190603
  16. BACTRIM [Concomitant]
     Active Substance: SULFAMETHOXAZOLE\TRIMETHOPRIM
     Route: 048
     Dates: start: 20190529, end: 20190607
  17. CORDARONE [Concomitant]
     Active Substance: AMIODARONE HYDROCHLORIDE
     Route: 048
  18. AMOXICILLINE [Concomitant]
     Active Substance: AMOXICILLIN
     Route: 042
     Dates: start: 20190408, end: 20190411
  19. CALCIDOSE VITAMINE D, POUDRE ORALE EN SACHET-DOSE [Concomitant]
     Active Substance: CALCIUM\CHOLECALCIFEROL
     Route: 048
  20. LASILIX [Concomitant]
     Active Substance: FUROSEMIDE
     Route: 048
     Dates: start: 20190402, end: 20190423

REACTIONS (1)
  - Agranulocytosis [Recovered/Resolved]

NARRATIVE: CASE EVENT DATE: 20190513
